FAERS Safety Report 25968408 (Version 1)
Quarter: 2025Q4

REPORT INFORMATION
  Report Type: Spontaneous
  Country: EU (occurrence: EU)
  Receive Date: 20251028
  Receipt Date: 20251028
  Transmission Date: 20260118
  Serious: Yes (Hospitalization)
  Sender: RANBAXY
  Company Number: EU-SUN PHARMACEUTICAL INDUSTRIES LTD-2025RR-533248

PATIENT
  Age: 65 Year
  Sex: Female

DRUGS (11)
  1. METFORMIN [Suspect]
     Active Substance: METFORMIN HYDROCHLORIDE
     Indication: Diabetes mellitus
     Dosage: START DATE OF THERAPY ASSIGNED EX OFFICIO. ONE 500 MG TABLET IN THE MORNING AND ONE 500 MG TABLET IN
     Route: 048
  2. TOUJEO [Suspect]
     Active Substance: INSULIN GLARGINE
     Indication: Diabetes mellitus
     Dosage: START DATE OF THERAPY ASSIGNED EX OFFICIO. TOUJEO 38 IU ADMINISTERED ACCORDING TO THE BASAL BOLUS SC
     Route: 065
  3. INSULIN NOS [Suspect]
     Active Substance: INSULIN NOS
     Indication: Diabetes mellitus
     Dosage: DATA INIZIO DELLA TERAPIA ATTRIBUITA D^UFFICIO.INSULINA RAPIDA SOMMINISTRATA TRE VOLTE AL GIORNO, 10
     Route: 065
  4. VALPROATE SODIUM [Concomitant]
     Active Substance: VALPROATE SODIUM
     Indication: Product used for unknown indication
  5. CHLORPROMAZINE [Concomitant]
     Active Substance: CHLORPROMAZINE
     Indication: Product used for unknown indication
  6. Tavor [Concomitant]
     Indication: Product used for unknown indication
  7. LEVOTHYROXINE SODIUM [Concomitant]
     Active Substance: LEVOTHYROXINE SODIUM
     Indication: Product used for unknown indication
  8. SERTRALINE [Concomitant]
     Active Substance: SERTRALINE HYDROCHLORIDE
     Indication: Product used for unknown indication
  9. HALOPERIDOL [Concomitant]
     Active Substance: HALOPERIDOL
     Indication: Product used for unknown indication
  10. EN [Concomitant]
     Active Substance: DELORAZEPAM
     Indication: Product used for unknown indication
  11. OMEGA-3 FATTY ACIDS [Concomitant]
     Active Substance: OMEGA-3 FATTY ACIDS
     Indication: Product used for unknown indication

REACTIONS (1)
  - Hypoglycaemia [Recovered/Resolved]

NARRATIVE: CASE EVENT DATE: 20250201
